FAERS Safety Report 9727747 (Version 1)
Quarter: 2013Q4

REPORT INFORMATION
  Report Type: Spontaneous
  Country: US (occurrence: US)
  Receive Date: 20131203
  Receipt Date: 20131203
  Transmission Date: 20140711
  Serious: No
  Sender: FDA-Public Use
  Company Number: US-ENDO PHARMACEUTICALS INC.-AMIT20120027

PATIENT
  Age: 71 Year
  Sex: Female

DRUGS (2)
  1. AMITRIPTYLINE HCL [Suspect]
     Indication: FIBROMYALGIA
     Route: 048
     Dates: start: 20120921, end: 20121116
  2. AMITRIPTYLINE HCL [Suspect]
     Indication: MIGRAINE PROPHYLAXIS

REACTIONS (2)
  - Polyuria [Recovered/Resolved]
  - Drug ineffective [Recovered/Resolved]
